FAERS Safety Report 26054384 (Version 3)
Quarter: 2025Q4

REPORT INFORMATION
  Report Type: Spontaneous
  Country: EU (occurrence: EU)
  Receive Date: 20251117
  Receipt Date: 20251222
  Transmission Date: 20260118
  Serious: Yes (Hospitalization, Other)
  Sender: CIPLA
  Company Number: EU-LRB-01095026

PATIENT

DRUGS (4)
  1. ESOMEPRAZOLE [Suspect]
     Active Substance: ESOMEPRAZOLE
     Indication: Helicobacter infection
     Dosage: 20 MILLIGRAM, BID (EVERY 12 HOURS), GASTRO-RESISTANT CAPSULE (1 PIECE TWICE A DAY)
     Route: 048
     Dates: start: 20250813
  2. CLARITHROMYCIN [Suspect]
     Active Substance: CLARITHROMYCIN
     Indication: Helicobacter infection
     Dosage: 500 MILLIGRAM, BID (EVERY 12 HOURS) (1 PIECE TWICE A DAY)
     Route: 048
     Dates: start: 20250813
  3. AMOXICILLIN [Suspect]
     Active Substance: AMOXICILLIN
     Indication: Helicobacter infection
     Dosage: 1000 MILLIGRAM, BID (EVERY 12 HOURS), 1 PIECE TWICE A DAY
     Route: 048
     Dates: start: 20250813
  4. NAPROXEN [Concomitant]
     Active Substance: NAPROXEN
     Indication: Product used for unknown indication
     Dosage: 500 MILLIGRAM
     Route: 048

REACTIONS (1)
  - Clostridial infection [Not Recovered/Not Resolved]
